FAERS Safety Report 9859153 (Version 1)
Quarter: 2014Q1

REPORT INFORMATION
  Report Type: Report from Study
  Country: US (occurrence: US)
  Receive Date: 20140131
  Receipt Date: 20140131
  Transmission Date: 20141002
  Serious: Yes (Other)
  Sender: FDA-Public Use
  Company Number: US-ROCHE-1338301

PATIENT
  Sex: Female

DRUGS (9)
  1. AVASTIN [Suspect]
     Indication: DIABETIC RETINAL OEDEMA
     Route: 050
  2. LEVOTHYROXINE [Concomitant]
  3. NOVOLIN R [Concomitant]
  4. NOVOLIN N [Concomitant]
  5. PLAVIX [Concomitant]
  6. ASA [Concomitant]
  7. DIOVAN [Concomitant]
  8. HYDROCHLOROTHIAZIDE [Concomitant]
  9. SIMVASTATIN [Concomitant]

REACTIONS (1)
  - Blindness unilateral [Unknown]
